FAERS Safety Report 21340543 (Version 3)
Quarter: 2022Q4

REPORT INFORMATION
  Report Type: Report from Study
  Country: DZ (occurrence: DZ)
  Receive Date: 20220916
  Receipt Date: 20221006
  Transmission Date: 20230113
  Serious: Yes (Hospitalization)
  Sender: FDA-Public Use
  Company Number: DZ-BAYER-2022A127681

PATIENT
  Age: 39 Year
  Sex: Male

DRUGS (3)
  1. VENTAVIS [Suspect]
     Active Substance: ILOPROST
     Indication: Pulmonary arterial hypertension
     Dosage: 3 DF, QD
     Route: 055
     Dates: start: 202006
  2. VENTAVIS [Suspect]
     Active Substance: ILOPROST
     Route: 055
  3. VENTAVIS [Suspect]
     Active Substance: ILOPROST
     Route: 055

REACTIONS (2)
  - Hospitalisation [Not Recovered/Not Resolved]
  - Inappropriate schedule of product administration [Unknown]

NARRATIVE: CASE EVENT DATE: 20220907
